FAERS Safety Report 13883046 (Version 1)
Quarter: 2017Q3

REPORT INFORMATION
  Report Type: Report from Study
  Country: US (occurrence: US)
  Receive Date: 20170818
  Receipt Date: 20170818
  Transmission Date: 20171127
  Serious: Yes (Hospitalization, Other)
  Sender: FDA-Public Use
  Company Number: US-GILEAD-2017-0288358

PATIENT
  Age: 54 Year
  Sex: Male

DRUGS (1)
  1. LEDIPASVIR/SOFOSBUVIR [Suspect]
     Active Substance: LEDIPASVIR\SOFOSBUVIR
     Indication: CHRONIC HEPATITIS C
     Dosage: 1 DF, UNK
     Route: 048
     Dates: start: 20160624, end: 20160916

REACTIONS (9)
  - Vascular rupture [Unknown]
  - Internal haemorrhage [Unknown]
  - Infection [Unknown]
  - Hepatitis C [Unknown]
  - Hypertension [Unknown]
  - Upper gastrointestinal haemorrhage [Unknown]
  - Abdominal distension [Unknown]
  - Liver injury [Unknown]
  - Drug ineffective [Unknown]
